FAERS Safety Report 5568007-9 (Version None)
Quarter: 2007Q4

REPORT INFORMATION
  Report Type: 
  Country: None (occurrence: None)
  Receive Date: 20071220
  Receipt Date: 20071211
  Transmission Date: 20080405
  Serious: Yes (Hospitalization)
  Sender: FDA-Public Use
  Company Number: ES-JNJFOC-20071203553

PATIENT
  Age: 62 Year
  Sex: Female

DRUGS (4)
  1. INFLIXIMAB [Suspect]
     Route: 042
  2. INFLIXIMAB [Suspect]
     Indication: RHEUMATOID ARTHRITIS
     Route: 042
  3. DEFLAZACORT [Concomitant]
     Indication: RHEUMATOID ARTHRITIS
  4. OMEPRAZOLE [Concomitant]
     Indication: PROPHYLAXIS

REACTIONS (2)
  - LYMPH NODE TUBERCULOSIS [None]
  - PERITONEAL TUBERCULOSIS [None]
